FAERS Safety Report 11076050 (Version 2)
Quarter: 2015Q2

REPORT INFORMATION
  Report Type: Spontaneous
  Country: IT (occurrence: IT)
  Receive Date: 20150429
  Receipt Date: 20150505
  Transmission Date: 20150821
  Serious: Yes (Hospitalization)
  Sender: FDA-Public Use
  Company Number: IT-JNJFOC-20150421602

PATIENT
  Age: 79 Year
  Sex: Female

DRUGS (2)
  1. SERENASE [Suspect]
     Active Substance: HALOPERIDOL
     Indication: DELIRIUM
     Route: 048
     Dates: start: 20150416, end: 20150422
  2. TRITTICO [Suspect]
     Active Substance: TRAZODONE HYDROCHLORIDE
     Indication: PSYCHOMOTOR HYPERACTIVITY
     Route: 048
     Dates: start: 20150416, end: 20150422

REACTIONS (5)
  - Confusional state [Recovered/Resolved]
  - Tremor [Recovered/Resolved]
  - Performance status decreased [Recovered/Resolved]
  - Sopor [Recovered/Resolved]
  - Disorientation [Recovered/Resolved]

NARRATIVE: CASE EVENT DATE: 20150422
